FAERS Safety Report 17610607 (Version 1)
Quarter: 2020Q1

REPORT INFORMATION
  Report Type: Spontaneous
  Country: US (occurrence: US)
  Receive Date: 20200330
  Receipt Date: 20200330
  Transmission Date: 20200409
  Serious: No
  Sender: FDA-Public Use
  Company Number: None

PATIENT
  Age: 75 Year
  Sex: Male

DRUGS (1)
  1. ZYTIGA [Suspect]
     Active Substance: ABIRATERONE ACETATE
     Route: 048
     Dates: start: 201910

REACTIONS (6)
  - Pain in jaw [None]
  - Insomnia [None]
  - Drug ineffective [None]
  - Bone pain [None]
  - Blood pressure increased [None]
  - Myalgia [None]

NARRATIVE: CASE EVENT DATE: 20200330
